FAERS Safety Report 5419470-5 (Version None)
Quarter: 2007Q3

REPORT INFORMATION
  Report Type: 
  Country: None (occurrence: None)
  Receive Date: 20070817
  Receipt Date: 20070817
  Transmission Date: 20080115
  Serious: Yes (Other)
  Sender: FDA-Public Use
  Company Number: None

PATIENT
  Sex: Female
  Weight: 58.9676 kg

DRUGS (1)
  1. TRASYLOL [Suspect]
     Indication: HAEMORRHAGE

REACTIONS (4)
  - AORTIC VALVE REPLACEMENT [None]
  - LIVER INJURY [None]
  - RENAL FAILURE ACUTE [None]
  - SEPTIC SHOCK [None]
